FAERS Safety Report 6405729-1 (Version None)
Quarter: 2009Q4

REPORT INFORMATION
  Report Type: 
  Country: None (occurrence: None)
  Receive Date: 20091016
  Receipt Date: 20091016
  Transmission Date: 20100525
  Serious: Yes (Disabling)
  Sender: FDA-Public Use
  Company Number: None

PATIENT
  Age: 69 Year
  Sex: Female
  Weight: 74.8435 kg

DRUGS (1)
  1. LEVAQUIN [Suspect]
     Indication: SINUSITIS
     Dosage: 750 MG 1 TAB EVERY DAY PO
     Route: 048
     Dates: start: 20090321, end: 20090327

REACTIONS (3)
  - ARTHRALGIA [None]
  - MOVEMENT DISORDER [None]
  - TENDONITIS [None]
